FAERS Safety Report 9528818 (Version 1)
Quarter: 2013Q1

REPORT INFORMATION
  Report Type: Spontaneous
  Country: US (occurrence: None)
  Receive Date: 20130322
  Receipt Date: 20130322
  Transmission Date: 20140127
  Serious: Yes (Other)
  Sender: FDA-Public Use
  Company Number: PHEH2012US017350

PATIENT
  Age: 45 Year
  Sex: Female

DRUGS (9)
  1. NEORAL [Suspect]
     Indication: PSORIASIS
     Dosage: 1 DF, QD
     Dates: start: 20120730
  2. AMLODIPINE BESYLATE (AMLODIPINE BESILATE) [Concomitant]
  3. ACIDOPHILUS (LACOBACILLUS ACIDOPHILUS) [Concomitant]
  4. VITAMIN B12 (CYANOCOBALAMIN) [Concomitant]
  5. VITAMIN B COMPLEX (CALCIUM PANTOTHENATE, NICOTINAMIDE, PYRIDOXINE HYDROCHLORIDE, RIBOFLAVIN, THIAMINE HYDROCHLORIDE)? [Concomitant]
  6. FOLIC ACID (FOLIC ACID) [Concomitant]
  7. BIOTIN (BIOTIN) [Concomitant]
  8. FISH OIL (FISH OIL) [Concomitant]
  9. MAGNESIUM (MAGNESIUM) [Concomitant]

REACTIONS (4)
  - Psoriasis [None]
  - Blepharospasm [None]
  - Incorrect dose administered [None]
  - Drug ineffective [None]
